FAERS Safety Report 11170770 (Version 1)
Quarter: 2015Q2

REPORT INFORMATION
  Report Type: Spontaneous
  Country: US (occurrence: None)
  Receive Date: 20150515
  Receipt Date: 20150515
  Transmission Date: 20150821
  Serious: Yes (Other)
  Sender: FDA-Public Use
  Company Number: 2014015769

PATIENT
  Age: 50 Year
  Sex: Female

DRUGS (1)
  1. CIMZIA [Suspect]
     Active Substance: CERTOLIZUMAB PEGOL
     Indication: CROHN^S DISEASE
     Dosage: 400MG, EV 2 WEEKS (QOW), STRENGTH 200MG., SUBCUTANEOUS
     Route: 058
     Dates: start: 2010

REACTIONS (3)
  - Psoriasis [None]
  - Urticaria [None]
  - Acne [None]

NARRATIVE: CASE EVENT DATE: 2010
